FAERS Safety Report 6572609-0 (Version None)
Quarter: 2010Q1

REPORT INFORMATION
  Report Type: 
  Country: None (occurrence: None)
  Receive Date: 20100205
  Receipt Date: 20091118
  Transmission Date: 20100710
  Serious: Yes (Other)
  Sender: FDA-Public Use
  Company Number: CHPA2009US14717

PATIENT
  Age: 22 Year
  Sex: Male
  Weight: 86.168 kg

DRUGS (2)
  1. EX-LAX MAX STR LAX PILLS SENNA (NCH) [Suspect]
     Indication: CONSTIPATION
     Dosage: UNK
     Route: 048
  2. EX-LAX MAX STR LAX PILLS SENNA (NCH) [Suspect]
     Dosage: 50 MG, QD
     Route: 048
     Dates: start: 20090626

REACTIONS (3)
  - ABDOMINAL PAIN UPPER [None]
  - DRUG INEFFECTIVE [None]
  - LOSS OF CONSCIOUSNESS [None]
